FAERS Safety Report 4826095-9 (Version None)
Quarter: 2005Q4

REPORT INFORMATION
  Report Type: 
  Country: None (occurrence: None)
  Receive Date: 20051014
  Receipt Date: 20050707
  Transmission Date: 20060501
  Serious: No
  Sender: FDA-Public Use
  Company Number: 2005SP001798

PATIENT
  Age: 65 Year
  Sex: Female

DRUGS (6)
  1. LUNESTA [Suspect]
     Indication: INSOMNIA
     Dosage: 3 MG; HS; ORAL
     Route: 048
     Dates: start: 20050622, end: 20050706
  2. LUNESTA [Suspect]
     Indication: NEUROPATHY
     Dosage: 3 MG; HS; ORAL
     Route: 048
     Dates: start: 20050622, end: 20050706
  3. NORVASK [Concomitant]
  4. ATENOLOL [Concomitant]
  5. PRAVACHOL [Concomitant]
  6. WATER PILL [Concomitant]

REACTIONS (1)
  - INSOMNIA [None]
